FAERS Safety Report 8997098 (Version 2)
Quarter: 2013Q1

REPORT INFORMATION
  Report Type: Report from Study
  Country: US (occurrence: US)
  Receive Date: 20130104
  Receipt Date: 20130115
  Transmission Date: 20140127
  Serious: Yes (Hospitalization, Other)
  Sender: FDA-Public Use
  Company Number: US-JNJFOC-20121211943

PATIENT
  Age: 58 Year
  Sex: Male
  Weight: 108 kg

DRUGS (5)
  1. EVICEL [Suspect]
     Indication: HAEMOSTASIS
     Route: 061
     Dates: start: 20120726
  2. LOCAL HAEMOSTATICS [Concomitant]
     Indication: HAEMOSTASIS
     Route: 061
     Dates: start: 20120726
  3. ASA [Concomitant]
     Indication: ANTIPLATELET THERAPY
     Route: 065
     Dates: start: 2009
  4. WARFARIN [Concomitant]
     Indication: ANTICOAGULANT THERAPY
     Route: 065
     Dates: start: 20120806
  5. PLAVIX [Concomitant]
     Indication: ANTIPLATELET THERAPY
     Route: 065
     Dates: start: 2009

REACTIONS (1)
  - Thrombosis [Recovered/Resolved]
